FAERS Safety Report 6936490-X (Version None)
Quarter: 2010Q3

REPORT INFORMATION
  Report Type: 
  Country: None (occurrence: None)
  Receive Date: 20100823
  Receipt Date: 20100816
  Transmission Date: 20110219
  Serious: Yes (Life-Threatening, Hospitalization)
  Sender: FDA-Public Use
  Company Number: DE-ROCHE-704494

PATIENT
  Age: 66 Year
  Sex: Male

DRUGS (4)
  1. CAPECITABINE [Suspect]
     Route: 065
     Dates: start: 20090922, end: 20091101
  2. AVASTIN [Suspect]
     Route: 065
     Dates: start: 20081014, end: 20091201
  3. FOLFIRI REGIMEN [Suspect]
     Route: 065
     Dates: start: 20081001, end: 20091101
  4. IRINOTECAN HCL [Concomitant]

REACTIONS (2)
  - COLITIS [None]
  - LARGE INTESTINE PERFORATION [None]
